FAERS Safety Report 5732781-9 (Version None)
Quarter: 2008Q2

REPORT INFORMATION
  Report Type: 
  Country: None (occurrence: None)
  Receive Date: 20080507
  Receipt Date: 20080507
  Transmission Date: 20081010
  Serious: Yes (Hospitalization)
  Sender: FDA-Public Use
  Company Number: None

PATIENT
  Age: 76 Year
  Sex: Male

DRUGS (2)
  1. CARBOPLATIN [Suspect]
     Dosage: 250 MG   ONCE     IV
     Route: 042
     Dates: start: 20080118, end: 20080118
  2. GEMCITABINE [Suspect]
     Dosage: 1250 MG    ONCE     IV
     Route: 042
     Dates: start: 20080118, end: 20080118

REACTIONS (8)
  - ANAEMIA [None]
  - ANOREXIA [None]
  - FATIGUE [None]
  - MALAISE [None]
  - NAUSEA [None]
  - ORAL INTAKE REDUCED [None]
  - SERUM FERRITIN INCREASED [None]
  - VOMITING [None]
